FAERS Safety Report 18197686 (Version 5)
Quarter: 2021Q2

REPORT INFORMATION
  Report Type: Spontaneous
  Country: US (occurrence: US)
  Receive Date: 20200826
  Receipt Date: 20210518
  Transmission Date: 20210717
  Serious: Yes (Other)
  Sender: FDA-Public Use
  Company Number: US-PFIZER INC-2020329701

PATIENT
  Age: 76 Year
  Sex: Male

DRUGS (1)
  1. XELJANZ XR [Suspect]
     Active Substance: TOFACITINIB CITRATE
     Indication: RHEUMATOID ARTHRITIS
     Dosage: 11 MG, DAILY
     Route: 048
     Dates: start: 20200711

REACTIONS (6)
  - Confusional state [Unknown]
  - Discouragement [Unknown]
  - Upper limb fracture [Unknown]
  - Product dose omission issue [Unknown]
  - Arthritis [Unknown]
  - Ligament disorder [Unknown]

NARRATIVE: CASE EVENT DATE: 2020
